FAERS Safety Report 22285852 (Version 1)
Quarter: 2023Q2

REPORT INFORMATION
  Report Type: Spontaneous
  Country: SD (occurrence: SD)
  Receive Date: 20230504
  Receipt Date: 20230504
  Transmission Date: 20230722
  Serious: Yes (Death, Other)
  Sender: FDA-Public Use
  Company Number: SD-STRIDES ARCOLAB LIMITED-2023SP006337

PATIENT
  Age: 58 Year
  Sex: Female

DRUGS (8)
  1. GABAPENTIN [Suspect]
     Active Substance: GABAPENTIN
     Indication: Paraesthesia
     Dosage: UNK; TILL 01 MAY (UNKNOWN YEAR)
     Route: 065
  2. GABAPENTIN [Suspect]
     Active Substance: GABAPENTIN
     Indication: Myalgia
  3. CIPROFLOXACIN [Suspect]
     Active Substance: CIPROFLOXACIN
     Indication: Typhoid fever
     Dosage: UNK
     Route: 065
  4. COBALAMIN [Suspect]
     Active Substance: COBALAMIN
     Indication: Paraesthesia
     Dosage: UNK; TILL 01 MAY (UNKNOWN YEAR)
     Route: 065
  5. COBALAMIN [Suspect]
     Active Substance: COBALAMIN
     Indication: Myalgia
  6. CEFIXIME [Suspect]
     Active Substance: CEFIXIME
     Indication: Product used for unknown indication
     Dosage: UNK
     Route: 065
  7. LEVOFLOXACIN [Suspect]
     Active Substance: LEVOFLOXACIN
     Indication: COVID-19
     Dosage: UNK
     Route: 065
  8. MEROPENEM [Suspect]
     Active Substance: MEROPENEM
     Indication: COVID-19
     Dosage: UNK
     Route: 065

REACTIONS (3)
  - Death [Fatal]
  - Fatigue [Unknown]
  - Off label use [Unknown]
